FAERS Safety Report 10447396 (Version 1)
Quarter: 2014Q3

REPORT INFORMATION
  Report Type: Spontaneous
  Country: JP (occurrence: JP)
  Receive Date: 20140911
  Receipt Date: 20140911
  Transmission Date: 20150326
  Serious: Yes (Death, Hospitalization)
  Sender: FDA-Public Use
  Company Number: PHHY2014JP116275

PATIENT
  Age: 56 Year
  Sex: Male

DRUGS (6)
  1. ISONIAZID. [Suspect]
     Active Substance: ISONIAZID
     Indication: TUBERCULOSIS
     Dosage: 450 MG, UNK
  2. RIFAMPICIN [Concomitant]
     Active Substance: RIFAMPIN
     Indication: TUBERCULOSIS
     Dosage: 450 MG, UNK
  3. STREPTOMYCIN [Concomitant]
     Active Substance: STREPTOMYCIN\STREPTOMYCIN SULFATE
     Indication: TUBERCULOSIS
  4. LEVOFLOXACIN [Concomitant]
     Active Substance: LEVOFLOXACIN
     Indication: TUBERCULOSIS
     Dosage: 600 MG, UNK
  5. ANTIFUNGAL DRUGS [Concomitant]
     Active Substance: UNSPECIFIED INGREDIENT
  6. INSULIN [Concomitant]
     Active Substance: INSULIN NOS

REACTIONS (2)
  - Hypersensitivity [Recovered/Resolved]
  - Hepatocellular carcinoma [Fatal]
